FAERS Safety Report 5669991-5 (Version None)
Quarter: 2008Q1

REPORT INFORMATION
  Report Type: 
  Country: None (occurrence: None)
  Receive Date: 20080317
  Receipt Date: 20080312
  Transmission Date: 20080703
  Serious: Yes (Congenital Anomaly)
  Sender: FDA-Public Use
  Company Number: LB-BOEHRINGER INGELHEIM GMBH, GERMANY-2008-BP-03811RO

PATIENT
  Weight: 2.115 kg

DRUGS (1)
  1. METHOTREXATE [Suspect]
     Route: 064

REACTIONS (13)
  - ATRIAL SEPTAL DEFECT [None]
  - CONGENITAL ABSENCE OF VERTEBRA [None]
  - FACIAL PALSY [None]
  - GALLOP RHYTHM PRESENT [None]
  - HEMIVERTEBRA [None]
  - HYPERTELORISM OF ORBIT [None]
  - MICROTIA [None]
  - NIPPLE DISORDER [None]
  - OTOACOUSTIC EMISSIONS TEST ABNORMAL [None]
  - PULMONARY ARTERIAL PRESSURE INCREASED [None]
  - RETINAL ANOMALY CONGENITAL [None]
  - SCOLIOSIS [None]
  - VENTRICULAR SEPTAL DEFECT [None]
